FAERS Safety Report 19958399 (Version 2)
Quarter: 2021Q4

REPORT INFORMATION
  Report Type: Spontaneous
  Country: JP (occurrence: JP)
  Receive Date: 20211015
  Receipt Date: 20211019
  Transmission Date: 20220303
  Serious: Yes (Hospitalization, Other)
  Sender: FDA-Public Use
  Company Number: JP-UNITED THERAPEUTICS-UNT-2021-019254

PATIENT
  Age: 30 Year
  Sex: Female

DRUGS (2)
  1. REMODULIN [Suspect]
     Active Substance: TREPROSTINIL
     Indication: Pulmonary arterial hypertension
     Dosage: 0.0387 ?G/KG, CONTINUING (APPROXIMATELY 1.5 FOLD)
     Route: 041
     Dates: start: 20210823
  2. REMODULIN [Suspect]
     Active Substance: TREPROSTINIL
     Dosage: DOSE WAS INCREASED TO 1.8 TIMES THE DOSE OF EPOPROSTENOL SODIUM, CONTINUING
     Route: 041
     Dates: start: 202108

REACTIONS (2)
  - Device related infection [Unknown]
  - Staphylococcal infection [Unknown]

NARRATIVE: CASE EVENT DATE: 20210901
